FAERS Safety Report 19994950 (Version 1)
Quarter: 2021Q4

REPORT INFORMATION
  Report Type: Spontaneous
  Country: US (occurrence: US)
  Receive Date: 20211025
  Receipt Date: 20211025
  Transmission Date: 20220303
  Serious: Yes (Other)
  Sender: FDA-Public Use
  Company Number: None

PATIENT
  Age: 22 Year
  Sex: Female
  Weight: 54 kg

DRUGS (1)
  1. XULANE [Suspect]
     Active Substance: ETHINYL ESTRADIOL\NORELGESTROMIN
     Indication: Contraception
     Route: 061
     Dates: start: 20211022, end: 20211022

REACTIONS (3)
  - Anxiety [None]
  - Tremor [None]
  - Pain in extremity [None]

NARRATIVE: CASE EVENT DATE: 20211022
